FAERS Safety Report 19664837 (Version 2)
Quarter: 2022Q1

REPORT INFORMATION
  Report Type: Spontaneous
  Country: US (occurrence: US)
  Receive Date: 20210805
  Receipt Date: 20220317
  Transmission Date: 20220423
  Serious: Yes (Other)
  Sender: FDA-Public Use
  Company Number: US-GILEAD-2021-0542473

PATIENT
  Sex: Male
  Weight: 79.378 kg

DRUGS (35)
  1. ATRIPLA [Suspect]
     Active Substance: EFAVIRENZ\EMTRICITABINE\TENOFOVIR DISOPROXIL FUMARATE
     Indication: HIV infection
     Dosage: UNK
     Route: 048
     Dates: start: 2006
  2. ATRIPLA [Suspect]
     Active Substance: EFAVIRENZ\EMTRICITABINE\TENOFOVIR DISOPROXIL FUMARATE
     Dosage: UNK
     Route: 048
     Dates: start: 20090804, end: 20091113
  3. ATRIPLA [Suspect]
     Active Substance: EFAVIRENZ\EMTRICITABINE\TENOFOVIR DISOPROXIL FUMARATE
     Dosage: UNK
     Route: 048
     Dates: start: 20091113, end: 20130404
  4. ATRIPLA [Suspect]
     Active Substance: EFAVIRENZ\EMTRICITABINE\TENOFOVIR DISOPROXIL FUMARATE
     Dosage: UNK
     Route: 048
     Dates: start: 20130404, end: 201905
  5. BIKTARVY [Concomitant]
     Active Substance: BICTEGRAVIR SODIUM\EMTRICITABINE\TENOFOVIR ALAFENAMIDE FUMARATE
  6. KALETRA [Concomitant]
     Active Substance: LOPINAVIR\RITONAVIR
  7. ALPRAZOLAM [Concomitant]
     Active Substance: ALPRAZOLAM
  8. CLONIDINE [Concomitant]
     Active Substance: CLONIDINE
  9. TRIAMCINOLONE [Concomitant]
     Active Substance: TRIAMCINOLONE
  10. TIAGABINE [Concomitant]
     Active Substance: TIAGABINE
  11. LOVASTATIN [Concomitant]
     Active Substance: LOVASTATIN
  12. BYSTOLIC [Concomitant]
     Active Substance: NEBIVOLOL HYDROCHLORIDE
  13. CYPROHEPTADINE [Concomitant]
     Active Substance: CYPROHEPTADINE
  14. LOSARTAN [Concomitant]
     Active Substance: LOSARTAN
  15. DOXYCYCLINE [Concomitant]
     Active Substance: DOXYCYCLINE
  16. MELOXICAM [Concomitant]
     Active Substance: MELOXICAM
     Indication: Bone density decreased
  17. POTASSIUM CHLORIDE [Concomitant]
     Active Substance: POTASSIUM CHLORIDE
  18. NEXIUM I.V. [Concomitant]
     Active Substance: ESOMEPRAZOLE SODIUM
  19. VITAMIN B [Concomitant]
     Active Substance: VITAMIN B
  20. AZELASTINE [Concomitant]
     Active Substance: AZELASTINE
  21. AMITIZA [Concomitant]
     Active Substance: LUBIPROSTONE
  22. METRONIDAZOLE [Concomitant]
     Active Substance: METRONIDAZOLE
  23. SUCRALFATE [Concomitant]
     Active Substance: SUCRALFATE
  24. DICYCLOMINE [Concomitant]
     Active Substance: DICYCLOMINE HYDROCHLORIDE
  25. ONDANSETRON [Concomitant]
     Active Substance: ONDANSETRON
  26. VIAGRA [Concomitant]
     Active Substance: SILDENAFIL CITRATE
  27. DRONABINOL [Concomitant]
     Active Substance: DRONABINOL
  28. OXYCODONE [Concomitant]
     Active Substance: OXYCODONE
  29. MEGESTROL [Concomitant]
     Active Substance: MEGESTROL
  30. AMITRIPTYLINE [Concomitant]
     Active Substance: AMITRIPTYLINE
  31. GABITRIL [Concomitant]
     Active Substance: TIAGABINE HYDROCHLORIDE
  32. CARISOPRODOL [Concomitant]
     Active Substance: CARISOPRODOL
  33. SULFAMETHOXAZOLE\TRIMETHOPRIM [Concomitant]
     Active Substance: SULFAMETHOXAZOLE\TRIMETHOPRIM
  34. PERCOCET [Concomitant]
     Active Substance: ACETAMINOPHEN\OXYCODONE HYDROCHLORIDE
  35. ESOMEPRAZOLE [Concomitant]
     Active Substance: ESOMEPRAZOLE

REACTIONS (11)
  - Osteoporosis [Unknown]
  - Bone density decreased [Not Recovered/Not Resolved]
  - Upper limb fracture [Recovered/Resolved]
  - Anxiety [Not Recovered/Not Resolved]
  - Emotional distress [Not Recovered/Not Resolved]
  - Pain [Not Recovered/Not Resolved]
  - Anhedonia [Not Recovered/Not Resolved]
  - Dysstasia [Unknown]
  - Mobility decreased [Unknown]
  - Loss of personal independence in daily activities [Unknown]
  - Depression [Not Recovered/Not Resolved]

NARRATIVE: CASE EVENT DATE: 20150101
